FAERS Safety Report 11456090 (Version 2)
Quarter: 2015Q3

REPORT INFORMATION
  Report Type: Spontaneous
  Country: IT (occurrence: IT)
  Receive Date: 20150903
  Receipt Date: 20150908
  Transmission Date: 20151125
  Serious: Yes (Other)
  Sender: FDA-Public Use
  Company Number: IT-BRISTOL-MYERS SQUIBB COMPANY-BMS-2015-046581

PATIENT
  Age: 65 Year
  Sex: Male
  Weight: 70 kg

DRUGS (3)
  1. IRINOTECAN [Concomitant]
     Active Substance: IRINOTECAN
     Indication: COLON CANCER
     Dosage: 300 MG, UNK
     Route: 041
     Dates: start: 20141105, end: 20150513
  2. ERBITUX [Suspect]
     Active Substance: CETUXIMAB
     Indication: COLON CANCER
     Dosage: 400 MG, QWK
     Route: 042
     Dates: start: 20141105, end: 20150527
  3. DESAMETASONE FOSF                  /00016010/ [Suspect]
     Active Substance: DEXAMETHASONE PHOSPHATE
     Indication: COLON CANCER
     Dosage: 8 MG, QWK
     Route: 042
     Dates: start: 20141105, end: 20150527

REACTIONS (1)
  - Visual acuity reduced [Recovered/Resolved]

NARRATIVE: CASE EVENT DATE: 20150527
